FAERS Safety Report 10676390 (Version 1)
Quarter: 2014Q4

REPORT INFORMATION
  Report Type: Spontaneous
  Country: GB (occurrence: GB)
  Receive Date: 20141226
  Receipt Date: 20141226
  Transmission Date: 20150529
  Serious: Yes (Other)
  Sender: FDA-Public Use
  Company Number: GB-BAYER-2014-188922

PATIENT
  Sex: Female

DRUGS (1)
  1. ADALAT [Suspect]
     Active Substance: NIFEDIPINE

REACTIONS (1)
  - Neoplasm malignant [None]
